FAERS Safety Report 23275587 (Version 1)
Quarter: 2023Q4

REPORT INFORMATION
  Report Type: Spontaneous
  Country: CN (occurrence: CN)
  Receive Date: 20231208
  Receipt Date: 20231208
  Transmission Date: 20240109
  Serious: Yes (Other)
  Sender: FDA-Public Use
  Company Number: CN-SANDOZ-SDZ2023CN065272

PATIENT
  Age: 59 Year
  Sex: Male

DRUGS (1)
  1. VORICONAZOLE [Suspect]
     Active Substance: VORICONAZOLE
     Indication: Bronchopulmonary aspergillosis
     Dosage: 0.40 G, QD
     Route: 048
     Dates: start: 20231117, end: 20231120

REACTIONS (1)
  - Substance-induced psychotic disorder [Recovering/Resolving]

NARRATIVE: CASE EVENT DATE: 20231120
